FAERS Safety Report 21556934 (Version 1)
Quarter: 2022Q4

REPORT INFORMATION
  Report Type: Spontaneous
  Country: DE (occurrence: DE)
  Receive Date: 20221104
  Receipt Date: 20221104
  Transmission Date: 20230113
  Serious: Yes (Hospitalization)
  Sender: FDA-Public Use
  Company Number: DE-ADRED-07311-01

PATIENT
  Age: 79 Year
  Sex: Female
  Weight: 100 kg

DRUGS (16)
  1. DULOXETINE [Suspect]
     Active Substance: DULOXETINE
     Indication: Product used for unknown indication
     Dosage: 30 MILLIGRAM, 30 MG, 2-0-0-0, RETARD CAPSULE
     Route: 048
  2. TORSEMIDE [Suspect]
     Active Substance: TORSEMIDE
     Indication: Product used for unknown indication
     Dosage: 10 MILLIGRAM,10 MG, 0.5-0-0-0, TABLET
     Route: 048
  3. HYDROCHLOROTHIAZIDE [Suspect]
     Active Substance: HYDROCHLOROTHIAZIDE
     Indication: Product used for unknown indication
     Dosage: 125 MILLIGRAM, 12.5 MG, 1-0-0-0, TABLET
     Route: 048
  4. RAMIPRIL [Suspect]
     Active Substance: RAMIPRIL
     Indication: Product used for unknown indication
     Dosage: 2.5 MILLIGRAM, ~2.5 MG, 1-0-0-0, TABLET
     Route: 048
  5. PIPAMPERONE [Concomitant]
     Active Substance: PIPAMPERONE
     Dosage: 20 MILLIGRAM, 20 MG, 1-1-1-2,  NEED
     Route: 048
  6. DALTEPARIN [Concomitant]
     Active Substance: DALTEPARIN
     Dosage: 5000 INTERNATIONAL UNIT, UNK, 5000 IE, 0-0-1-0,
     Route: 058
  7. RISPERIDONE [Concomitant]
     Active Substance: RISPERIDONE
     Dosage: 1 MILLIGRAM, UNK, 1 MG, 1-0-1-0, TABLET
     Route: 048
  8. NIFEDIPINE [Concomitant]
     Active Substance: NIFEDIPINE
     Dosage: 10 MILLIGRAM,  10 MILLIGRAM,CAPSULES
     Route: 048
  9. PANTOPRAZOLE SODIUM [Concomitant]
     Active Substance: PANTOPRAZOLE SODIUM
     Dosage: 20 MILLIGRAM, 20 MG, 1-0-0-0, RETARD-TABLET
     Route: 048
  10. ASPIRIN [Concomitant]
     Active Substance: ASPIRIN
     Dosage: 100 MILLIGRAM,100 MG, 0-1-0-0, TABLET
     Route: 048
  11. PREGABALIN [Concomitant]
     Active Substance: PREGABALIN
     Dosage: 25 MILLIGRAM,25 MG, 1-1-1-0, CAPSULE
     Route: 048
  12. LORAZEPAM [Concomitant]
     Active Substance: LORAZEPAM
     Dosage: 1 MILLIGRAM, 1 MG, 1-1-1-2, SCHEME LOZENGE
     Route: 048
  13. METHYLCOBALAMIN [Concomitant]
     Active Substance: METHYLCOBALAMIN
     Dosage: 10 MILLIGRAM, 1 MG, 1-0-0-0, TABLET
     Route: 048
  14. SIMVASTATIN [Concomitant]
     Active Substance: SIMVASTATIN
     Dosage: 40 MILLIGRAM, 40 MG, 0-0-1-0, TABLERT
     Route: 048
  15. CHOLECALCIFEROL [Concomitant]
     Active Substance: CHOLECALCIFEROL
     Dosage: 2000 INTERNATIONAL UNIT, 20000 IE, SCHEME LOZENGE
     Route: 048
  16. MOVICOL [Concomitant]
     Active Substance: POLYETHYLENE GLYCOL 3350\POTASSIUM CHLORIDE\SODIUM BICARBONATE\SODIUM CHLORIDE
     Dosage: 13.125|0.0502|0.1786|0.3508 G,1-0-0-0, FURTHER
     Route: 048

REACTIONS (5)
  - Dehydration [Unknown]
  - Renal failure [Unknown]
  - Renal impairment [Unknown]
  - Confusional state [Unknown]
  - Product monitoring error [Unknown]
